FAERS Safety Report 4935003-1 (Version None)
Quarter: 2006Q1

REPORT INFORMATION
  Report Type: 
  Country: None (occurrence: None)
  Receive Date: 20060127
  Receipt Date: 20051017
  Transmission Date: 20060701
  Serious: Yes (Other)
  Sender: FDA-Public Use
  Company Number: 2005144886

PATIENT
  Age: 44 Year
  Sex: Female
  Weight: 51.7101 kg

DRUGS (9)
  1. LYRICA [Suspect]
     Indication: BACK PAIN
     Dosage: 150 MG (50 MG, 3 IN 1 D)
     Dates: start: 20051014
  2. CARISOPRODOL [Concomitant]
  3. LEXAPRO [Concomitant]
  4. LORCET PLUS (HYDROCODONE BITARTRATE, PARACETAMOL0 [Concomitant]
  5. ELMIRON [Concomitant]
  6. ZOMIG [Concomitant]
  7. PHENERGAN EXPECTORANT 9CHLOROFORM, CITRIC ACID, IPECACUANHA FLUID EXTR [Concomitant]
  8. PREVACID [Concomitant]
  9. ALL OTHER THERAPEUTIC PRODUCTS (ALL OTHER THERAPEUTIC PRODUCTS) [Concomitant]

REACTIONS (1)
  - SOMNOLENCE [None]
